FAERS Safety Report 6104923-7 (Version None)
Quarter: 2009Q1

REPORT INFORMATION
  Report Type: 
  Country: None (occurrence: None)
  Receive Date: 20090306
  Receipt Date: 20090227
  Transmission Date: 20090719
  Serious: Yes (Other)
  Sender: FDA-Public Use
  Company Number: PHHY2009JP04393

PATIENT
  Sex: Male
  Weight: 15 kg

DRUGS (2)
  1. TEGRETOL [Suspect]
     Indication: PETIT MAL EPILEPSY
     Dosage: 50 MG, UNK
     Route: 048
     Dates: start: 20071206, end: 20071219
  2. TEGRETOL [Suspect]
     Dosage: 100 MG, UNK
     Route: 048
     Dates: start: 20071220

REACTIONS (6)
  - BLOOD ALKALINE PHOSPHATASE INCREASED [None]
  - BLOOD CREATININE DECREASED [None]
  - BLOOD LACTATE DEHYDROGENASE INCREASED [None]
  - HAEMATOCRIT DECREASED [None]
  - HAEMOGLOBIN DECREASED [None]
  - HYPERPHOSPHATASAEMIA [None]
